FAERS Safety Report 15947822 (Version 1)
Quarter: 2019Q1

REPORT INFORMATION
  Report Type: Spontaneous
  Country: IT (occurrence: IT)
  Receive Date: 20190211
  Receipt Date: 20190211
  Transmission Date: 20190417
  Serious: Yes (Other)
  Sender: FDA-Public Use
  Company Number: IT-HQ SPECIALTY-IT-2019INT000024

PATIENT

DRUGS (4)
  1. VINORELBINE [Suspect]
     Active Substance: VINORELBINE\VINORELBINE TARTRATE
     Dosage: 25 MG/M2, (ON DAYS 1?8 EVERY 3 WEEKS FOR FOUR CYCLES)
     Route: 042
  2. VINORELBINE [Suspect]
     Active Substance: VINORELBINE\VINORELBINE TARTRATE
     Indication: NON-SMALL CELL LUNG CANCER
     Dosage: 22.5 MG/M2, (ON DAYS 1 AND 8 EVERY 21 DAYS FOR FOUR CYCLES) TWO CYCLES
     Route: 042
  3. CISPLATIN. [Suspect]
     Active Substance: CISPLATIN
     Indication: NON-SMALL CELL LUNG CANCER
     Dosage: 50 MG/M2, (ON DAY 1) TWO CYCLES
  4. NIVOLUMAB [Concomitant]
     Active Substance: NIVOLUMAB
     Indication: NON-SMALL CELL LUNG CANCER
     Dosage: 3 MG/KG, (EVERY 3 WEEKS FOR A TOTAL OF EIGHT CYCLES)
     Route: 042

REACTIONS (1)
  - Febrile neutropenia [Recovered/Resolved]
